FAERS Safety Report 24116111 (Version 1)
Quarter: 2024Q3

REPORT INFORMATION
  Report Type: Spontaneous
  Country: US (occurrence: US)
  Receive Date: 20240722
  Receipt Date: 20240722
  Transmission Date: 20241017
  Serious: No
  Sender: BAXTER
  Company Number: US-BAXTER-2024BAX021532

PATIENT

DRUGS (2)
  1. ARTISS [Suspect]
     Active Substance: FIBRINOGEN HUMAN\THROMBIN HUMAN
     Dosage: (2 EA OF ARTISS, PRIMA, PRE FILLED 4 ML)
     Route: 065
  2. ARTISS [Suspect]
     Active Substance: FIBRINOGEN HUMAN\THROMBIN HUMAN
     Dosage: (2 EA OF ARTISS, PRIMA, PRE FILLED 4 ML)
     Route: 065

REACTIONS (5)
  - Contusion [Unknown]
  - Swelling [Unknown]
  - Liquid product physical issue [Unknown]
  - Product physical issue [Unknown]
  - Product delivery mechanism issue [Unknown]

NARRATIVE: CASE EVENT DATE: 20240611
